FAERS Safety Report 4319480-5 (Version None)
Quarter: 2004Q1

REPORT INFORMATION
  Report Type: 
  Country: None (occurrence: None)
  Receive Date: 20040318
  Receipt Date: 20040318
  Transmission Date: 20041129
  Serious: Yes (Other)
  Sender: FDA-Public Use
  Company Number: None

PATIENT
  Age: 43 Year
  Sex: Male
  Weight: 85.3216 kg

DRUGS (1)
  1. ORAMORPH SR [Suspect]
     Indication: BACK PAIN
     Dosage: 120-180 MG Q8H ORAL
     Route: 048
     Dates: start: 20040213, end: 20040312

REACTIONS (2)
  - DRUG INEFFECTIVE [None]
  - NAUSEA [None]
